FAERS Safety Report 5389813-X (Version None)
Quarter: 2007Q3

REPORT INFORMATION
  Report Type: 
  Country: None (occurrence: None)
  Receive Date: 20070718
  Receipt Date: 20070713
  Transmission Date: 20080115
  Serious: Yes (Hospitalization)
  Sender: FDA-Public Use
  Company Number: GBWYE029116JUL07

PATIENT
  Sex: Female

DRUGS (2)
  1. EFFEXOR XR [Suspect]
     Route: 048
     Dates: start: 20070618
  2. EFFEXOR XR [Suspect]
     Route: 048

REACTIONS (3)
  - INSOMNIA [None]
  - NIGHT SWEATS [None]
  - THROMBOSIS [None]
